FAERS Safety Report 5291821-4 (Version None)
Quarter: 2007Q2

REPORT INFORMATION
  Report Type: 
  Country: None (occurrence: None)
  Receive Date: 20070410
  Receipt Date: 20070403
  Transmission Date: 20071010
  Serious: Yes (Death)
  Sender: FDA-Public Use
  Company Number: FR-BAYER-200710193BFR

PATIENT
  Age: 18 Year
  Sex: Male

DRUGS (1)
  1. TRASYLOL [Suspect]
     Indication: HAEMORRHAGE CONTROL
     Dates: start: 19991214, end: 19991214

REACTIONS (2)
  - ANAPHYLACTIC REACTION [None]
  - CARDIAC FAILURE [None]
